FAERS Safety Report 5944497-4 (Version None)
Quarter: 2008Q4

REPORT INFORMATION
  Report Type: 
  Country: None (occurrence: None)
  Receive Date: 20081107
  Receipt Date: 20081024
  Transmission Date: 20090506
  Serious: Yes (Hospitalization, Disabling)
  Sender: FDA-Public Use
  Company Number: FR-CELGENEUS-056-20785-08091731

PATIENT
  Sex: Male
  Weight: 81 kg

DRUGS (1)
  1. THALIDOMIDE [Suspect]
     Route: 048
     Dates: start: 20080203, end: 20080611

REACTIONS (1)
  - OPTIC ISCHAEMIC NEUROPATHY [None]
